FAERS Safety Report 26202530 (Version 1)
Quarter: 2025Q4

REPORT INFORMATION
  Report Type: Spontaneous
  Country: US (occurrence: US)
  Receive Date: 20251226
  Receipt Date: 20251226
  Transmission Date: 20260117
  Serious: Yes (Life-Threatening, Hospitalization, Other)
  Sender: STRIDES
  Company Number: US-STRIDES ARCOLAB LIMITED-2025SP016021

PATIENT
  Age: 42 Year
  Sex: Female

DRUGS (1)
  1. AMLODIPINE [Suspect]
     Active Substance: AMLODIPINE BESYLATE
     Indication: Product used for unknown indication
     Dosage: ACCIDENTAL OVERDOSE OF EIGHT PILLS OF AMLODIPINE ASSUMING THE MEDICATION WAS IBUPROFEN
     Route: 065

REACTIONS (13)
  - Multiple organ dysfunction syndrome [Unknown]
  - Hypoxia [Unknown]
  - Cardiogenic shock [Unknown]
  - Diastolic dysfunction [Unknown]
  - Acute kidney injury [Unknown]
  - Metabolic acidosis [Unknown]
  - Thrombosis [Unknown]
  - Accidental overdose [Unknown]
  - Wrong product administered [Unknown]
  - Tachycardia [Unknown]
  - Hyperglycaemia [Recovering/Resolving]
  - Hypotension [Unknown]
  - Toxicity to various agents [Unknown]
